FAERS Safety Report 6686723-2 (Version None)
Quarter: 2010Q2

REPORT INFORMATION
  Report Type: 
  Country: None (occurrence: None)
  Receive Date: 20100414
  Receipt Date: 20100330
  Transmission Date: 20101027
  Serious: Yes (Death)
  Sender: FDA-Public Use
  Company Number: 2010S1000030

PATIENT
  Age: 18 Year
  Sex: Male

DRUGS (1)
  1. INOMAX [Suspect]
     Indication: PULMONARY HAEMORRHAGE
     Dosage: 80 PPM;CONT;INH
     Route: 055
     Dates: start: 20100318, end: 20100319

REACTIONS (1)
  - DEATH [None]
